FAERS Safety Report 19894688 (Version 2)
Quarter: 2021Q4

REPORT INFORMATION
  Report Type: Spontaneous
  Country: IT (occurrence: IT)
  Receive Date: 20210929
  Receipt Date: 20211006
  Transmission Date: 20220303
  Serious: Yes (Other)
  Sender: FDA-Public Use
  Company Number: None

PATIENT
  Age: 28 Year
  Sex: Male
  Weight: 80 kg

DRUGS (2)
  1. ADALIMUMAB [Suspect]
     Active Substance: ADALIMUMAB
     Indication: Arthritis reactive
     Dosage: 40 MILLIGRAM, QWK
     Route: 058
     Dates: start: 20190119, end: 20190119
  2. ETORICOXIB [Concomitant]
     Active Substance: ETORICOXIB
     Dosage: UNK

REACTIONS (3)
  - Erectile dysfunction [Recovering/Resolving]
  - Loss of libido [Recovering/Resolving]
  - Product substitution issue [Recovering/Resolving]

NARRATIVE: CASE EVENT DATE: 20190120
